FAERS Safety Report 6615340-5 (Version None)
Quarter: 2010Q1

REPORT INFORMATION
  Report Type: 
  Country: None (occurrence: None)
  Receive Date: 20100305
  Receipt Date: 20090714
  Transmission Date: 20100710
  Serious: No
  Sender: FDA-Public Use
  Company Number: A0796885A

PATIENT
  Age: 63 Year
  Sex: Female

DRUGS (6)
  1. REQUIP [Suspect]
     Indication: RESTLESS LEGS SYNDROME
     Route: 048
     Dates: start: 20070901
  2. ROPINIROLE [Suspect]
  3. ATACAND [Concomitant]
  4. TOPROL-XL [Concomitant]
  5. NAPROSYN [Concomitant]
  6. PREVACID [Concomitant]

REACTIONS (5)
  - ABDOMINAL DISCOMFORT [None]
  - CARDIAC DISORDER [None]
  - INSOMNIA [None]
  - PARAESTHESIA [None]
  - PSYCHOMOTOR HYPERACTIVITY [None]
